FAERS Safety Report 5223494-0 (Version None)
Quarter: 2007Q1

REPORT INFORMATION
  Report Type: 
  Country: None (occurrence: None)
  Receive Date: 20070125
  Receipt Date: 20070116
  Transmission Date: 20070707
  Serious: Yes (Other)
  Sender: FDA-Public Use
  Company Number: 235104

PATIENT
  Sex: Female

DRUGS (1)
  1. AVASTIN [Suspect]
     Indication: OVARIAN CANCER
     Dosage: Q3W, INTRAVENOUS
     Route: 042
     Dates: start: 20060801

REACTIONS (1)
  - URTICARIA GENERALISED [None]
